FAERS Safety Report 5206280-7 (Version None)
Quarter: 2006Q4

REPORT INFORMATION
  Report Type: 
  Country: None (occurrence: None)
  Receive Date: 20061031
  Receipt Date: 20060807
  Transmission Date: 20070319
  Serious: No
  Sender: FDA-Public Use
  Company Number: 2006-BP-09120BP

PATIENT
  Sex: Male

DRUGS (1)
  1. APTIVUS/RITONAVIR CAPSULES (TIPRANAVIR W/RITONAVIR) [Suspect]
     Dosage: SEE TEXT, TPV/R

REACTIONS (1)
  - LIPODYSTROPHY ACQUIRED [None]
